FAERS Safety Report 7893665-3 (Version None)
Quarter: 2011Q4

REPORT INFORMATION
  Report Type: 
  Country: None (occurrence: None)
  Receive Date: 20111104
  Receipt Date: 20111020
  Transmission Date: 20120403
  Serious: Yes (Hospitalization)
  Sender: FDA-Public Use
  Company Number: US-ASTRAZENECA-2011SE63662

PATIENT
  Age: 57 Year
  Sex: Male

DRUGS (2)
  1. AMARYL [Concomitant]
  2. TOPROL-XL [Suspect]
     Route: 048

REACTIONS (1)
  - DRUG DOSE OMISSION [None]
